FAERS Safety Report 12824694 (Version 7)
Quarter: 2018Q2

REPORT INFORMATION
  Report Type: Report from Study
  Country: BR (occurrence: BR)
  Receive Date: 20161007
  Receipt Date: 20180416
  Transmission Date: 20180711
  Serious: Yes (Hospitalization, Other)
  Sender: FDA-Public Use
  Company Number: PHHY2016BR136374

PATIENT
  Sex: Female
  Weight: 47.6 kg

DRUGS (7)
  1. EXJADE [Suspect]
     Active Substance: DEFERASIROX
     Indication: HEPATIC CIRRHOSIS
     Dosage: 1000 MG, (TWO TABLETS OF 500MG))
     Route: 048
  2. VITAMIN D [Concomitant]
     Active Substance: CHOLECALCIFEROL
     Indication: OSTEOPOROSIS
     Dosage: UNK
     Route: 065
  3. FOLIC ACID. [Concomitant]
     Active Substance: FOLIC ACID
     Dosage: 2 DF, QD
     Route: 048
  4. EXJADE [Suspect]
     Active Substance: DEFERASIROX
     Indication: SPHEROCYTIC ANAEMIA
     Dosage: 2 DF, QD
     Route: 048
     Dates: start: 2007
  5. FOLIC ACID. [Concomitant]
     Active Substance: FOLIC ACID
     Indication: HAEMOLYTIC ANAEMIA
     Dosage: 10 MG, QD
     Route: 065
  6. LANTUS [Concomitant]
     Active Substance: INSULIN GLARGINE
     Indication: DIABETES MELLITUS
     Dosage: 12 U, QD
     Route: 058
  7. HUMALOG [Concomitant]
     Active Substance: INSULIN LISPRO
     Indication: DIABETES MELLITUS
     Dosage: 10 U,  (ONCE A DAY 3 TIMES A DAY AN TOTAL OF 10 U)
     Route: 058

REACTIONS (17)
  - Immunodeficiency [Recovered/Resolved]
  - Stress [Unknown]
  - Asthenia [Unknown]
  - Bone neoplasm [Recovered/Resolved]
  - General physical health deterioration [Recovered/Resolved]
  - Sinusitis [Recovered/Resolved]
  - Malaise [Recovered/Resolved]
  - Osteoporosis [Recovering/Resolving]
  - Influenza [Recovered/Resolved]
  - Nervous system disorder [Unknown]
  - Infection [Recovering/Resolving]
  - Feeling hot [Recovered/Resolved]
  - Splenomegaly [Recovered/Resolved]
  - Peripheral swelling [Recovered/Resolved]
  - Haematocrit decreased [Recovered/Resolved]
  - Swelling [Recovered/Resolved]
  - Diabetes mellitus [Not Recovered/Not Resolved]

NARRATIVE: CASE EVENT DATE: 2017
